FAERS Safety Report 5375413-4 (Version None)
Quarter: 2007Q2

REPORT INFORMATION
  Report Type: 
  Country: None (occurrence: None)
  Receive Date: 20070629
  Receipt Date: 20070618
  Transmission Date: 20071010
  Serious: Yes (Hospitalization)
  Sender: FDA-Public Use
  Company Number: JP-PFIZER INC-2007030141

PATIENT
  Sex: Male

DRUGS (3)
  1. CABASER [Suspect]
     Indication: PARKINSON'S DISEASE
     Route: 048
     Dates: start: 20070403, end: 20070417
  2. PREDONINE [Concomitant]
     Route: 048
  3. TAKEPRON [Concomitant]
     Route: 048

REACTIONS (1)
  - EOSINOPHIL COUNT INCREASED [None]
